FAERS Safety Report 6448601-3 (Version None)
Quarter: 2009Q4

REPORT INFORMATION
  Report Type: 
  Country: None (occurrence: None)
  Receive Date: 20091119
  Receipt Date: 20091119
  Transmission Date: 20100525
  Serious: Yes (Hospitalization)
  Sender: FDA-Public Use
  Company Number: None

PATIENT
  Age: 62 Year
  Sex: Male
  Weight: 104.55 kg

DRUGS (3)
  1. FUROSEMIDE [Suspect]
     Indication: CARDIAC FAILURE CONGESTIVE
     Dosage: MG AT BEDTIME PO
     Route: 048
     Dates: start: 20091001
  2. FUROSEMIDE [Suspect]
     Indication: OEDEMA PERIPHERAL
     Dosage: MG AT BEDTIME PO
     Route: 048
     Dates: start: 20091001
  3. LISINOPRIL [Suspect]
     Indication: HYPERTENSION
     Dosage: 5 MG EVERY DAY PO
     Route: 048
     Dates: start: 20090419, end: 20091116

REACTIONS (5)
  - ASTHENIA [None]
  - CONFUSIONAL STATE [None]
  - DEHYDRATION [None]
  - HYPOTENSION [None]
  - MEMORY IMPAIRMENT [None]
